FAERS Safety Report 18193579 (Version 2)
Quarter: 2023Q4

REPORT INFORMATION
  Report Type: Spontaneous
  Country: FR (occurrence: FR)
  Receive Date: 20200825
  Receipt Date: 20231020
  Transmission Date: 20240110
  Serious: Yes (Life-Threatening, Other)
  Sender: FDA-Public Use
  Company Number: None

PATIENT
  Age: 54 Year
  Sex: Male
  Weight: 62 kg

DRUGS (4)
  1. CYTARABINE [Interacting]
     Active Substance: CYTARABINE
     Indication: Bone marrow conditioning regimen
     Dosage: 715 MG, 1X/DAY
     Route: 042
     Dates: start: 20200624, end: 20200627
  2. ETOPOSIDE [Interacting]
     Active Substance: ETOPOSIDE
     Indication: Bone marrow conditioning regimen
     Dosage: 715 MG, 1X/DAY
     Route: 042
     Dates: start: 20200624, end: 20200627
  3. CARMUSTINE [Interacting]
     Active Substance: CARMUSTINE
     Indication: Bone marrow conditioning regimen
     Dosage: 550 MG, SINGLE
     Route: 042
     Dates: start: 20200623, end: 20200623
  4. MELPHALAN [Interacting]
     Active Substance: MELPHALAN
     Indication: Bone marrow conditioning regimen
     Dosage: 250.5 MG, SINGLE
     Route: 041
     Dates: start: 20200628, end: 20200628

REACTIONS (7)
  - Liver injury [Recovering/Resolving]
  - Pneumonia [Recovered/Resolved]
  - Acute respiratory distress syndrome [Recovered/Resolved]
  - Colitis [Recovering/Resolving]
  - Drug interaction [Recovering/Resolving]
  - Febrile bone marrow aplasia [Recovering/Resolving]
  - Mucosal inflammation [Recovering/Resolving]

NARRATIVE: CASE EVENT DATE: 20200601
